FAERS Safety Report 12693933 (Version 1)
Quarter: 2016Q3

REPORT INFORMATION
  Report Type: Spontaneous
  Country: CA (occurrence: CA)
  Receive Date: 20160829
  Receipt Date: 20160829
  Transmission Date: 20161109
  Serious: Yes (Other)
  Sender: FDA-Public Use
  Company Number: CA-PFIZER INC-2016051829

PATIENT
  Age: 44 Year
  Sex: Female

DRUGS (12)
  1. HUMIRA [Suspect]
     Active Substance: ADALIMUMAB
     Indication: RHEUMATOID ARTHRITIS
     Dosage: 40 MG, EVERY 2 WEEKS
     Route: 058
     Dates: start: 200510, end: 2007
  2. PREDNISONE. [Concomitant]
     Active Substance: PREDNISONE
     Dosage: UNK
  3. METHOTREXATE SODIUM. [Suspect]
     Active Substance: METHOTREXATE SODIUM
     Dosage: 25 MG, UNK
     Route: 048
     Dates: start: 200410
  4. RITUXAN [Concomitant]
     Active Substance: RITUXIMAB
     Indication: RHEUMATOID ARTHRITIS
     Dosage: 1000 MG, UNK
     Route: 042
     Dates: start: 200802
  5. LEFLUNOMIDE. [Suspect]
     Active Substance: LEFLUNOMIDE
     Indication: RHEUMATOID ARTHRITIS
     Dosage: 20 MG, 1X/DAY
     Dates: start: 200206, end: 200410
  6. HYDROXYCHLOROQUINE [Concomitant]
     Active Substance: HYDROXYCHLOROQUINE
     Dosage: UNK
  7. PLAQUENIL [Concomitant]
     Active Substance: HYDROXYCHLOROQUINE SULFATE
     Indication: RHEUMATOID ARTHRITIS
     Dosage: 400 MG, 1X/DAY
     Dates: start: 2004
  8. ENBREL [Suspect]
     Active Substance: ETANERCEPT
     Indication: RHEUMATOID ARTHRITIS
     Dosage: 25 MG, 2X/WEEK
     Route: 058
     Dates: start: 200502, end: 200512
  9. ORENCIA [Suspect]
     Active Substance: ABATACEPT
     Indication: RHEUMATOID ARTHRITIS
     Dosage: 1000 MG, EVERY 4 WEEKS
     Dates: start: 200811, end: 200908
  10. HUMIRA [Suspect]
     Active Substance: ADALIMUMAB
     Dosage: 40 MG, UNK
     Route: 058
     Dates: start: 200909, end: 20160126
  11. HUMIRA [Suspect]
     Active Substance: ADALIMUMAB
     Dosage: 40 MG, CYCLIC
     Dates: start: 2016, end: 2016
  12. METHOTREXATE SODIUM. [Concomitant]
     Active Substance: METHOTREXATE SODIUM

REACTIONS (4)
  - Treatment failure [Not Recovered/Not Resolved]
  - Drug ineffective [Not Recovered/Not Resolved]
  - Foot deformity [Not Recovered/Not Resolved]
  - Gait disturbance [Not Recovered/Not Resolved]

NARRATIVE: CASE EVENT DATE: 2005
